FAERS Safety Report 18336348 (Version 1)
Quarter: 2020Q4

REPORT INFORMATION
  Report Type: Report from Study
  Country: US (occurrence: US)
  Receive Date: 20201001
  Receipt Date: 20201001
  Transmission Date: 20210113
  Serious: Yes (Hospitalization, Other)
  Sender: FDA-Public Use
  Company Number: US-JNJFOC-A-US2017-151000

PATIENT
  Age: 53 Year
  Sex: Female
  Weight: 85.81 kg

DRUGS (5)
  1. COUMADIN [Concomitant]
     Active Substance: WARFARIN SODIUM
  2. OPSUMIT [Suspect]
     Active Substance: MACITENTAN
     Route: 048
  3. ADCIRCA [Concomitant]
     Active Substance: TADALAFIL
  4. OPSUMIT [Suspect]
     Active Substance: MACITENTAN
     Indication: PULMONARY ARTERIAL HYPERTENSION
     Route: 048
  5. AMLODIPINE [Concomitant]
     Active Substance: AMLODIPINE BESYLATE

REACTIONS (17)
  - Head injury [Unknown]
  - Syncope [Unknown]
  - Infection [Unknown]
  - Pain [Recovering/Resolving]
  - Haemoglobin decreased [Unknown]
  - Transfusion [Unknown]
  - Influenza [Unknown]
  - Cystitis [Unknown]
  - Cerebral haemorrhage [Unknown]
  - Foot fracture [Unknown]
  - Foot operation [Unknown]
  - Fall [Unknown]
  - Weight decreased [Unknown]
  - Hypotension [Unknown]
  - Pulmonary arterial pressure abnormal [Recovering/Resolving]
  - Immunodeficiency [Unknown]
  - Amnesia [Unknown]

NARRATIVE: CASE EVENT DATE: 20180821
